FAERS Safety Report 25051089 (Version 1)
Quarter: 2025Q1

REPORT INFORMATION
  Report Type: Spontaneous
  Country: US (occurrence: None)
  Receive Date: 20250307
  Receipt Date: 20250307
  Transmission Date: 20250408
  Serious: Yes (Life-Threatening, Hospitalization)
  Sender: FDA-CTU
  Company Number: None

PATIENT
  Age: 86 Year
  Sex: Male
  Weight: 78.3 kg

DRUGS (2)
  1. AZITHROMYCIN [Suspect]
     Active Substance: AZITHROMYCIN
     Indication: Pneumonia
     Route: 042
     Dates: start: 20250228, end: 20250228
  2. ONDANSETRON [Suspect]
     Active Substance: ONDANSETRON
     Indication: Nausea
     Route: 040
     Dates: start: 20250228, end: 20250228

REACTIONS (6)
  - Sepsis [None]
  - Pneumonia [None]
  - Influenza [None]
  - Ventricular tachycardia [None]
  - Torsade de pointes [None]
  - Haemoptysis [None]

NARRATIVE: CASE EVENT DATE: 20250228
